FAERS Safety Report 21400371 (Version 1)
Quarter: 2022Q4

REPORT INFORMATION
  Report Type: Report from Study
  Country: CA (occurrence: CA)
  Receive Date: 20221002
  Receipt Date: 20221002
  Transmission Date: 20230113
  Serious: Yes (Hospitalization)
  Sender: FDA-Public Use
  Company Number: CA-ABBVIE-4132539

PATIENT
  Age: 64 Year
  Sex: Female

DRUGS (1)
  1. HUMIRA [Suspect]
     Active Substance: ADALIMUMAB
     Indication: Crohn^s disease
     Route: 058
     Dates: start: 20160112

REACTIONS (6)
  - Foot fracture [Unknown]
  - Hip fracture [Unknown]
  - Pancreatic disorder [Unknown]
  - Back pain [Unknown]
  - Abdominal pain lower [Unknown]
  - Injection site pain [Unknown]

NARRATIVE: CASE EVENT DATE: 20211201
